FAERS Safety Report 5476860-2 (Version None)
Quarter: 2007Q4

REPORT INFORMATION
  Report Type: 
  Country: None (occurrence: None)
  Receive Date: 20071004
  Receipt Date: 20070924
  Transmission Date: 20080405
  Serious: Yes (Hospitalization)
  Sender: FDA-Public Use
  Company Number: US-AMGEN-STX244551

PATIENT
  Sex: Female

DRUGS (2)
  1. ENBREL [Suspect]
     Indication: PSORIATIC ARTHROPATHY
     Route: 058
     Dates: start: 20051001
  2. METHOTREXATE [Concomitant]
     Route: 048
     Dates: start: 20060901

REACTIONS (8)
  - BLOOD PRESSURE INCREASED [None]
  - CHEST PAIN [None]
  - GASTROOESOPHAGEAL REFLUX DISEASE [None]
  - INJECTION SITE REACTION [None]
  - IRRITABLE BOWEL SYNDROME [None]
  - LOCALISED INFECTION [None]
  - TOOTH INFECTION [None]
  - VITAMIN D DEFICIENCY [None]
